FAERS Safety Report 20016335 (Version 1)
Quarter: 2021Q4

REPORT INFORMATION
  Report Type: Spontaneous
  Country: US (occurrence: None)
  Receive Date: 20211103
  Receipt Date: 20211103
  Transmission Date: 20220304
  Serious: No
  Sender: FDA-Public Use
  Company Number: None

PATIENT

DRUGS (1)
  1. MORPHINE SULFATE [Suspect]
     Active Substance: MORPHINE SULFATE

REACTIONS (6)
  - Product dispensing error [None]
  - Incorrect route of product administration [None]
  - Sedation [None]
  - General physical health deterioration [None]
  - Wrong technique in product usage process [None]
  - Device issue [None]
